FAERS Safety Report 16330500 (Version 1)
Quarter: 2019Q2

REPORT INFORMATION
  Report Type: Spontaneous
  Country: US (occurrence: US)
  Receive Date: 20190520
  Receipt Date: 20190520
  Transmission Date: 20190711
  Serious: Yes (Hospitalization, Other)
  Sender: FDA-Public Use
  Company Number: US-AUROBINDO-AUR-APL-2019-028446

PATIENT

DRUGS (1)
  1. MINOCYCLINE [Suspect]
     Active Substance: MINOCYCLINE\MINOCYCLINE HYDROCHLORIDE
     Indication: ACNE CYSTIC
     Dosage: UNK
     Route: 048

REACTIONS (6)
  - Eosinophilia [Recovered/Resolved]
  - Chest pain [Recovering/Resolving]
  - Troponin increased [Recovering/Resolving]
  - Paraesthesia [Recovering/Resolving]
  - Eosinophilic myocarditis [Recovering/Resolving]
  - Muscular weakness [Recovering/Resolving]
